FAERS Safety Report 14152999 (Version 1)
Quarter: 2017Q4

REPORT INFORMATION
  Report Type: Spontaneous
  Country: US (occurrence: US)
  Receive Date: 20171102
  Receipt Date: 20171102
  Transmission Date: 20180321
  Serious: No
  Sender: FDA-Public Use
  Company Number: US-BAYER-2017-210806

PATIENT
  Age: 54 Year
  Sex: Female
  Weight: 160 kg

DRUGS (8)
  1. ISONIAZID. [Concomitant]
     Active Substance: ISONIAZID
     Indication: TUBERCULOSIS
  2. ALEVE [Suspect]
     Active Substance: NAPROXEN SODIUM
     Indication: MUSCLE SPASMS
     Route: 048
  3. LOVASTATIN. [Concomitant]
     Active Substance: LOVASTATIN
  4. BAYER ASPIRIN REGIMEN [Concomitant]
  5. RANITIDINE. [Concomitant]
     Active Substance: RANITIDINE
  6. HYDROCODONE [Concomitant]
     Active Substance: HYDROCODONE
  7. VITAMIN B6 [Concomitant]
     Active Substance: PYRIDOXINE HYDROCHLORIDE
  8. CHOLESTEROL [Concomitant]
     Active Substance: CHOLESTEROL

REACTIONS (3)
  - Product use in unapproved indication [None]
  - Drug ineffective [None]
  - Therapeutic response unexpected [None]
